FAERS Safety Report 23371150 (Version 1)
Quarter: 2024Q1

REPORT INFORMATION
  Report Type: Spontaneous
  Country: US (occurrence: US)
  Receive Date: 20240105
  Receipt Date: 20240105
  Transmission Date: 20240410
  Serious: No
  Sender: FDA-Public Use
  Company Number: US-CURIUM-2023000956

PATIENT
  Age: 34 Year
  Sex: Male

DRUGS (1)
  1. IOFLUPANE I-123 [Suspect]
     Active Substance: IOFLUPANE I-123
     Indication: Product used for unknown indication
     Route: 050
     Dates: start: 20231115, end: 20231115

REACTIONS (2)
  - Product container seal issue [Recovered/Resolved]
  - Occupational exposure to radiation [Recovered/Resolved]

NARRATIVE: CASE EVENT DATE: 20231115
